FAERS Safety Report 16657494 (Version 3)
Quarter: 2020Q1

REPORT INFORMATION
  Report Type: Spontaneous
  Country: US (occurrence: US)
  Receive Date: 20190801
  Receipt Date: 20200323
  Transmission Date: 20200409
  Serious: Yes (Other)
  Sender: FDA-Public Use
  Company Number: US-SA-2019SA205836

PATIENT
  Age: 48 Year
  Sex: Male

DRUGS (1)
  1. DUPIXENT [Suspect]
     Active Substance: DUPILUMAB
     Indication: ASTHMA
     Dosage: 300 MG, QOW
     Route: 058
     Dates: start: 20190529

REACTIONS (4)
  - Pyrexia [Unknown]
  - Headache [Unknown]
  - Unevaluable event [Unknown]
  - Vision blurred [Unknown]

NARRATIVE: CASE EVENT DATE: 201907
